FAERS Safety Report 5463542-6 (Version None)
Quarter: 2007Q3

REPORT INFORMATION
  Report Type: 
  Country: None (occurrence: None)
  Receive Date: 20070920
  Receipt Date: 20070911
  Transmission Date: 20080115
  Serious: Yes (Other)
  Sender: FDA-Public Use
  Company Number: US-PFIZER INC-2007076120

PATIENT
  Sex: Female
  Weight: 72.727 kg

DRUGS (4)
  1. CHANTIX [Suspect]
     Indication: SMOKING CESSATION THERAPY
     Dates: start: 20070301, end: 20070501
  2. ALL OTHER THERAPEUTIC PRODUCTS [Concomitant]
  3. TRAZODONE HCL [Concomitant]
  4. SPIRIVA [Concomitant]

REACTIONS (4)
  - ABNORMAL DREAMS [None]
  - ACTIVITIES OF DAILY LIVING IMPAIRED [None]
  - DEPRESSION [None]
  - INSOMNIA [None]
